FAERS Safety Report 9310604 (Version 2)
Quarter: 2013Q3

REPORT INFORMATION
  Report Type: Spontaneous
  Country: US (occurrence: US)
  Receive Date: 20130527
  Receipt Date: 20130708
  Transmission Date: 20140515
  Serious: No
  Sender: FDA-Public Use
  Company Number: US-B.I. PHARMACEUTICALS,INC./RIDGEFIELD-2013-BI-14642BP

PATIENT
  Age: 58 Year
  Sex: Female
  Weight: 70 kg

DRUGS (3)
  1. SPIRIVA [Suspect]
     Indication: DYSPNOEA
     Dosage: 18 MCG
     Route: 055
     Dates: start: 201301
  2. ALLEGRA [Concomitant]
     Indication: HYPERSENSITIVITY
     Dosage: 180 MG
     Route: 048
  3. SINGULAIR [Concomitant]
     Indication: HYPERSENSITIVITY
     Dosage: 10 MG
     Route: 048

REACTIONS (2)
  - Dysuria [Not Recovered/Not Resolved]
  - Product quality issue [Recovered/Resolved]
